FAERS Safety Report 15318519 (Version 1)
Quarter: 2018Q3

REPORT INFORMATION
  Report Type: Spontaneous
  Country: US (occurrence: US)
  Receive Date: 20180817
  Receipt Date: 20180817
  Transmission Date: 20181010
  Serious: No
  Sender: FDA-Public Use
  Company Number: None

PATIENT
  Age: 30 Year
  Sex: Female
  Weight: 55.12 kg

DRUGS (17)
  1. PANTOPRAZOLE [Concomitant]
     Active Substance: PANTOPRAZOLE
  2. BISACODYL. [Concomitant]
     Active Substance: BISACODYL
  3. DOCUSATE [Concomitant]
     Active Substance: DOCUSATE
  4. FENTANYL. [Concomitant]
     Active Substance: FENTANYL
  5. OLANZAPINE. [Concomitant]
     Active Substance: OLANZAPINE
  6. MORPHINE [Concomitant]
     Active Substance: MORPHINE
  7. BRAFTOVI [Suspect]
     Active Substance: ENCORAFENIB
     Indication: MALIGNANT MELANOMA
     Route: 048
     Dates: start: 20180725
  8. MEPRON [Concomitant]
     Active Substance: ATOVAQUONE
  9. LACTULOSE. [Concomitant]
     Active Substance: LACTULOSE
  10. LEVOTHYROXINE. [Concomitant]
     Active Substance: LEVOTHYROXINE
  11. ATIVAN [Concomitant]
     Active Substance: LORAZEPAM
  12. THIAMINE [Concomitant]
     Active Substance: THIAMINE
  13. PREGABALIN. [Concomitant]
     Active Substance: PREGABALIN
  14. MEKTOVI [Suspect]
     Active Substance: BINIMETINIB
     Indication: MALIGNANT MELANOMA
     Route: 048
     Dates: start: 20180725
  15. SENNA [Concomitant]
     Active Substance: SENNA LEAF\SENNOSIDES\SENNOSIDES A AND B
  16. ZOFRAN [Concomitant]
     Active Substance: ONDANSETRON HYDROCHLORIDE
  17. METOCLOPRAMIDE. [Concomitant]
     Active Substance: METOCLOPRAMIDE

REACTIONS (2)
  - Constipation [None]
  - Vomiting [None]

NARRATIVE: CASE EVENT DATE: 20180817
